FAERS Safety Report 7840974-X (Version None)
Quarter: 2011Q4

REPORT INFORMATION
  Report Type: 
  Country: None (occurrence: None)
  Receive Date: 20111021
  Receipt Date: 20111021
  Transmission Date: 20120403
  Serious: Yes (Life-Threatening)
  Sender: FDA-Public Use
  Company Number: None

PATIENT
  Sex: Male
  Weight: 63.5036 kg

DRUGS (1)
  1. ZYPREXA [Suspect]
     Indication: BIPOLAR I DISORDER
     Dosage: 5 MILLIGRAMS 2 TIMES DAILY ORAL TABLET DISINTEGRATING
     Route: 048

REACTIONS (4)
  - DREAMY STATE [None]
  - FEELING ABNORMAL [None]
  - MOVEMENT DISORDER [None]
  - AMNESIA [None]
